FAERS Safety Report 6054104-0 (Version None)
Quarter: 2009Q1

REPORT INFORMATION
  Report Type: 
  Country: None (occurrence: None)
  Receive Date: 20090127
  Receipt Date: 20090115
  Transmission Date: 20090719
  Serious: Yes (Hospitalization, Other)
  Sender: FDA-Public Use
  Company Number: FR-PFIZER INC-2009157181

PATIENT

DRUGS (7)
  1. LYRICA [Suspect]
     Dosage: 150 MG, 2X/DAY
     Route: 048
     Dates: start: 20071201, end: 20080929
  2. DURAGESIC-100 [Suspect]
     Indication: PAIN
     Dosage: UNK
     Route: 062
     Dates: start: 20080901, end: 20080929
  3. URBANYL [Suspect]
     Indication: ANXIETY
     Dosage: 10 MG, 2X/DAY
     Route: 048
     Dates: start: 19880101
  4. COAPROVEL [Concomitant]
     Dosage: UNK
     Route: 048
     Dates: start: 20080301, end: 20080930
  5. HYDROCORTISONE [Concomitant]
     Dosage: UNK
     Route: 048
     Dates: start: 20080401, end: 20081007
  6. CACIT D3 [Concomitant]
     Dosage: UNK
     Route: 048
  7. TRANSULOSE [Concomitant]
     Dosage: UNK
     Route: 048

REACTIONS (1)
  - FALL [None]
